FAERS Safety Report 8621550-8 (Version None)
Quarter: 2012Q3

REPORT INFORMATION
  Report Type: 
  Country: None (occurrence: None)
  Receive Date: 20120824
  Receipt Date: 20120821
  Transmission Date: 20120928
  Serious: Yes (Other)
  Sender: FDA-Public Use
  Company Number: CHPA2012US018562

PATIENT
  Sex: Female

DRUGS (1)
  1. ALPHA-KERI MOISTURE RICH OIL [Suspect]
     Indication: DRY SKIN
     Dosage: UNK, EVERYDAY
     Route: 061
     Dates: start: 19920101

REACTIONS (2)
  - SCLERODERMA [None]
  - THERAPEUTIC RESPONSE UNEXPECTED [None]
